FAERS Safety Report 7837814-1 (Version None)
Quarter: 2011Q4

REPORT INFORMATION
  Report Type: 
  Country: None (occurrence: None)
  Receive Date: 20111024
  Receipt Date: 20100827
  Transmission Date: 20120403
  Serious: No
  Sender: FDA-Public Use
  Company Number: US-BAYER-201032182NA

PATIENT
  Sex: Female
  Weight: 79.365 kg

DRUGS (1)
  1. ULTRAVIST (PHARMACY BULK) [Suspect]
     Indication: COMPUTERISED TOMOGRAM
     Dosage: 125 ANTICUB WITH POWER INJECTOR @2
     Route: 042
     Dates: start: 20100827, end: 20100827

REACTIONS (2)
  - URTICARIA [None]
  - PRURITUS [None]
